FAERS Safety Report 6676375-X (Version None)
Quarter: 2010Q2

REPORT INFORMATION
  Report Type: 
  Country: None (occurrence: None)
  Receive Date: 20100412
  Receipt Date: 20100331
  Transmission Date: 20101027
  Serious: Yes (Other)
  Sender: FDA-Public Use
  Company Number: CA-ABBOTT-09P-028-0612258-00

PATIENT
  Sex: Female
  Weight: 64.922 kg

DRUGS (4)
  1. HUMIRA [Suspect]
     Indication: CROHN'S DISEASE
     Route: 058
     Dates: start: 20080911
  2. H1N1 VACCINE [Concomitant]
     Indication: DRUG USE FOR UNKNOWN INDICATION
     Route: 050
     Dates: start: 20091118, end: 20091118
  3. VITAMIN TAB [Concomitant]
     Indication: VITAMIN SUPPLEMENTATION
     Route: 048
     Dates: start: 20090817, end: 20100217
  4. TRAMADOL HCL [Concomitant]
     Indication: CROHN'S DISEASE
     Route: 048
     Dates: start: 20090825, end: 20090828

REACTIONS (14)
  - ALPHA 1 FOETOPROTEIN ABNORMAL [None]
  - AMNIORRHOEA [None]
  - BACK PAIN [None]
  - EAR PAIN [None]
  - H1N1 INFLUENZA [None]
  - HAEMOPTYSIS [None]
  - NASOPHARYNGITIS [None]
  - OROPHARYNGEAL PAIN [None]
  - PREMATURE LABOUR [None]
  - PYREXIA [None]
  - RESPIRATORY TRACT INFECTION [None]
  - SINUS CONGESTION [None]
  - SPUTUM DISCOLOURED [None]
  - WHITE BLOOD CELL COUNT INCREASED [None]
